FAERS Safety Report 5232732-X (Version None)
Quarter: 2007Q1

REPORT INFORMATION
  Report Type: 
  Country: None (occurrence: None)
  Receive Date: 20070206
  Receipt Date: 20070206
  Transmission Date: 20070707
  Serious: Yes (Death)
  Sender: FDA-Public Use
  Company Number: None

PATIENT
  Age: 56 Year
  Sex: Male
  Weight: 69.4003 kg

DRUGS (1)
  1. ALLOPURINOL [Suspect]
     Indication: GOUT
     Dosage: 300MG DAILY PO
     Route: 048
     Dates: start: 20060810, end: 20060911

REACTIONS (22)
  - BLOOD CREATININE INCREASED [None]
  - CARDIO-RESPIRATORY ARREST [None]
  - CHILLS [None]
  - CHOLECYSTITIS [None]
  - DIARRHOEA [None]
  - DRUG RASH WITH EOSINOPHILIA AND SYSTEMIC SYMPTOMS [None]
  - DYSPNOEA [None]
  - EXPOSURE TO TOXIC AGENT [None]
  - FATIGUE [None]
  - INSOMNIA [None]
  - METABOLIC ACIDOSIS [None]
  - MUSCLE SPASMS [None]
  - PAIN [None]
  - PLATELET COUNT DECREASED [None]
  - PYREXIA [None]
  - RASH [None]
  - REFUSAL OF TREATMENT BY PATIENT [None]
  - RENAL IMPAIRMENT [None]
  - SELF-MEDICATION [None]
  - SWELLING [None]
  - SYSTEMIC INFLAMMATORY RESPONSE SYNDROME [None]
  - WHITE BLOOD CELL COUNT INCREASED [None]
